FAERS Safety Report 13667569 (Version 1)
Quarter: 2017Q2

REPORT INFORMATION
  Report Type: Spontaneous
  Country: US (occurrence: US)
  Receive Date: 20170620
  Receipt Date: 20170620
  Transmission Date: 20170830
  Serious: No
  Sender: FDA-Public Use
  Company Number: US-TEVA-689993USA

PATIENT
  Sex: Female

DRUGS (2)
  1. COZAAR [Concomitant]
     Active Substance: LOSARTAN POTASSIUM
  2. PROPRANOLOL [Suspect]
     Active Substance: PROPRANOLOL HYDROCHLORIDE
     Indication: HYPERTENSION
     Dosage: 10 MILLIGRAM DAILY; 5 MG TWICE DAILY, CUTTING THE 10 MG TABLETS IN HALF
     Route: 065

REACTIONS (6)
  - Wrong technique in product usage process [Unknown]
  - Product substitution issue [Unknown]
  - Product size issue [Unknown]
  - Product physical issue [Unknown]
  - Drug ineffective [Unknown]
  - Anxiety [Unknown]
